FAERS Safety Report 5205209-5 (Version None)
Quarter: 2007Q1

REPORT INFORMATION
  Report Type: 
  Country: None (occurrence: None)
  Receive Date: 20070110
  Receipt Date: 20061218
  Transmission Date: 20070707
  Serious: Yes (Other)
  Sender: FDA-Public Use
  Company Number: US-GILEAD-2006-0010744

PATIENT
  Age: 38 Year
  Sex: Female

DRUGS (3)
  1. EMTRICITABINE [Suspect]
  2. TENOFOVIR DISOPROXIL FUMARATE [Suspect]
  3. SUSTIVA [Suspect]

REACTIONS (1)
  - HEPATITIS TOXIC [None]
